FAERS Safety Report 11716604 (Version 2)
Quarter: 2015Q4

REPORT INFORMATION
  Report Type: Spontaneous
  Country: US (occurrence: US)
  Receive Date: 20151104
  Receipt Date: 20151110
  Transmission Date: 20160304
  Serious: No
  Sender: FDA-Public Use
  Company Number: US-ELI_LILLY_AND_COMPANY-US201107006961

PATIENT
  Age: 54 Year
  Sex: Female

DRUGS (2)
  1. FORTEO [Suspect]
     Active Substance: TERIPARATIDE
     Dosage: 20 UG, QD
  2. FORTEO [Suspect]
     Active Substance: TERIPARATIDE
     Indication: OSTEOPOROSIS
     Dosage: 20 UG, QD
     Dates: start: 20110715, end: 20110729

REACTIONS (8)
  - Intentional product misuse [Not Recovered/Not Resolved]
  - Drug dose omission [Unknown]
  - Arthralgia [Recovering/Resolving]
  - Blood calcium increased [Unknown]
  - Myalgia [Recovering/Resolving]
  - Blood calcium abnormal [Unknown]
  - Injection site erythema [Unknown]
  - Nerve injury [Unknown]

NARRATIVE: CASE EVENT DATE: 2011
